FAERS Safety Report 7969149-0 (Version None)
Quarter: 2011Q4

REPORT INFORMATION
  Report Type: 
  Country: None (occurrence: None)
  Receive Date: 20111209
  Receipt Date: 20111207
  Transmission Date: 20120403
  Serious: Yes (Hospitalization)
  Sender: FDA-Public Use
  Company Number: AU-ROCHE-1015958

PATIENT
  Sex: Male

DRUGS (1)
  1. ACTEMRA [Suspect]
     Indication: RHEUMATOID ARTHRITIS
     Dates: start: 20111110

REACTIONS (6)
  - ORAL CANDIDIASIS [None]
  - PAIN [None]
  - DIZZINESS [None]
  - VIRAL INFECTION [None]
  - VIITH NERVE PARALYSIS [None]
  - HEADACHE [None]
